FAERS Safety Report 9773190 (Version 2)
Quarter: 2014Q2

REPORT INFORMATION
  Report Type: Spontaneous
  Country: US (occurrence: None)
  Receive Date: 20131217
  Receipt Date: 20140523
  Transmission Date: 20141212
  Serious: Yes (Congenital Anomaly)
  Sender: FDA-Public Use
  Company Number: 1994615

PATIENT
  Age: 1 Day
  Sex: Male

DRUGS (1)
  1. POTASSIUM CHLORIDE [Suspect]
     Indication: ABORTION INDUCED
     Dosage: INTRACARDIAC
     Route: 016

REACTIONS (4)
  - Maternal drugs affecting foetus [None]
  - Aplasia cutis congenita [None]
  - Drug ineffective [None]
  - Abortion induced complicated [None]
